FAERS Safety Report 21185196 (Version 1)
Quarter: 2022Q3

REPORT INFORMATION
  Report Type: Spontaneous
  Country: US (occurrence: None)
  Receive Date: 20220808
  Receipt Date: 20220808
  Transmission Date: 20221026
  Serious: No
  Sender: FDA-Public Use
  Company Number: None

PATIENT
  Age: 68 Year
  Sex: Female
  Weight: 67.5 kg

DRUGS (1)
  1. PAXLOVID [Suspect]
     Active Substance: NIRMATRELVIR\RITONAVIR
     Indication: COVID-19
     Dosage: OTHER QUANTITY : 3 TABLET(S);?FREQUENCY : EVERY 12 HOURS;?
     Route: 048

REACTIONS (10)
  - Product after taste [None]
  - Insomnia [None]
  - Emotional distress [None]
  - Nausea [None]
  - Abdominal discomfort [None]
  - Constipation [None]
  - Diarrhoea [None]
  - Malaise [None]
  - Fatigue [None]
  - Irritability [None]

NARRATIVE: CASE EVENT DATE: 20220807
